FAERS Safety Report 8844851 (Version 1)
Quarter: 2012Q4

REPORT INFORMATION
  Report Type: 
  Country: US (occurrence: US)
  Receive Date: 20121017
  Receipt Date: 20121017
  Transmission Date: 20130627
  Serious: Yes (Life-Threatening, Hospitalization, Other)
  Sender: FDA-Public Use
  Company Number: US-ROXANE LABORATORIES, INC.-2012-RO-01992RO

PATIENT
  Age: 54 Year
  Sex: Male

DRUGS (3)
  1. ALPRAZOLAM INTENSOL [ORAL SOLUTION (CONCENTRATE)] 1 MG/ML [Suspect]
  2. COCAINE [Suspect]
  3. OXYCODONE [Suspect]

REACTIONS (4)
  - Respiratory arrest [Recovered/Resolved]
  - Leukoencephalopathy [Recovered/Resolved]
  - Overdose [Recovered/Resolved]
  - Pneumonia aspiration [Recovered/Resolved]
